FAERS Safety Report 6618604-4 (Version None)
Quarter: 2010Q1

REPORT INFORMATION
  Report Type: 
  Country: None (occurrence: None)
  Receive Date: 20100308
  Receipt Date: 20100302
  Transmission Date: 20100710
  Serious: Yes (Disabling)
  Sender: FDA-Public Use
  Company Number: US-MERCK-1003USA00481

PATIENT
  Age: 93 Year
  Sex: Male

DRUGS (6)
  1. PROSCAR [Suspect]
     Indication: PROSTATOMEGALY
     Route: 048
     Dates: start: 20000101
  2. ARICEPT [Concomitant]
     Route: 065
  3. SYNTHROID [Concomitant]
     Route: 065
  4. ZOCOR [Concomitant]
     Route: 048
  5. ACTONEL [Concomitant]
     Route: 065
  6. TRAZODONE HYDROCHLORIDE [Concomitant]
     Route: 065

REACTIONS (3)
  - DEMENTIA [None]
  - HYPOKINESIA [None]
  - WRONG TECHNIQUE IN DRUG USAGE PROCESS [None]
